FAERS Safety Report 9239470 (Version 2)
Quarter: 2013Q2

REPORT INFORMATION
  Report Type: Report from Study
  Country: GB (occurrence: GB)
  Receive Date: 20130418
  Receipt Date: 20130424
  Transmission Date: 20140414
  Serious: Yes (Hospitalization)
  Sender: FDA-Public Use
  Company Number: GB-PFIZER INC-2013119058

PATIENT
  Age: 58 Year
  Sex: Female
  Weight: 61.8 kg

DRUGS (14)
  1. DOXORUBICIN [Suspect]
     Indication: DIFFUSE LARGE B-CELL LYMPHOMA
     Dosage: 85 MG, CYCLIC, EVERY 3 WEEKS
     Route: 042
     Dates: start: 20130326
  2. CYCLOPHOSPHAMIDE [Suspect]
     Indication: DIFFUSE LARGE B-CELL LYMPHOMA
     Dosage: 1300 MG, CYCLIC, EVERY 3 WEEKS
     Route: 042
     Dates: start: 20130326
  3. VINCRISTINE [Suspect]
     Indication: DIFFUSE LARGE B-CELL LYMPHOMA
     Dosage: 2 MG, CYCLIC, EVERY 3 WEEKS
     Route: 042
     Dates: start: 20130326
  4. PREDNISONE [Suspect]
     Indication: DIFFUSE LARGE B-CELL LYMPHOMA
     Dosage: 100 MG, CYCLIC, EVERY 3 WEEKS
     Route: 048
     Dates: start: 20130326
  5. OBINUTUZUMAB [Suspect]
     Indication: DIFFUSE LARGE B-CELL LYMPHOMA
     Dosage: 4 MG/ML, CYCLIC, EVERY 3 WEEKS
     Route: 042
     Dates: start: 20130326
  6. DOMPERIDONE [Concomitant]
     Indication: NAUSEA
     Dosage: UNK
     Dates: start: 20130228
  7. CO-DANTHRAMER [Concomitant]
     Indication: CONSTIPATION
     Dosage: UNK
     Dates: start: 20130228
  8. MORPHINE [Concomitant]
     Indication: BACK PAIN
     Dosage: UNK
     Dates: start: 20130228
  9. DEXAMETHASONE [Concomitant]
     Indication: PROPHYLAXIS
     Dosage: UNK
     Dates: start: 20130326, end: 20130326
  10. ONDANSETRON [Concomitant]
     Indication: NAUSEA
     Dosage: UNK
     Dates: start: 20130326
  11. PARACETAMOL [Concomitant]
     Indication: PYREXIA
     Dosage: UNK
     Dates: start: 20130326
  12. CHLORPHENAMINE [Concomitant]
     Indication: PRURITUS
     Dosage: UNK
     Dates: start: 20130326
  13. DALTEPARIN [Concomitant]
     Dosage: UNK
     Dates: start: 20130410
  14. DIHYDROCODEINE [Concomitant]

REACTIONS (1)
  - Neutropenic sepsis [Recovered/Resolved]
